FAERS Safety Report 6347924-6 (Version None)
Quarter: 2009Q3

REPORT INFORMATION
  Report Type: 
  Country: None (occurrence: None)
  Receive Date: 20090910
  Receipt Date: 20090902
  Transmission Date: 20100115
  Serious: Yes (Hospitalization)
  Sender: FDA-Public Use
  Company Number: PHHO2009US10803

PATIENT
  Sex: Female

DRUGS (10)
  1. RAD 666 RAD+TAB [Suspect]
     Indication: BREAST CANCER METASTATIC
  2. HERCEPTIN [Concomitant]
  3. AMBIEN [Concomitant]
     Indication: BREAST CANCER METASTATIC
     Dosage: UNK
     Route: 048
     Dates: start: 20090901
  4. FERROUS SULFATE TAB [Concomitant]
  5. LISINOPRIL [Concomitant]
  6. METOPROLOL TARTRATE [Concomitant]
  7. CLONIDINE [Concomitant]
  8. M.V.I. [Concomitant]
  9. ASCORBIC ACID [Suspect]
  10. REGLAN [Concomitant]

REACTIONS (3)
  - LIPASE INCREASED [None]
  - MUSCULOSKELETAL PAIN [None]
  - PANCREATITIS [None]
